FAERS Safety Report 7565572-7 (Version None)
Quarter: 2011Q2

REPORT INFORMATION
  Report Type: 
  Country: None (occurrence: None)
  Receive Date: 20110615
  Receipt Date: 20110606
  Transmission Date: 20111010
  Serious: Yes (Hospitalization, Other)
  Sender: FDA-Public Use
  Company Number: 2010JP006825

PATIENT
  Age: 3 Year
  Sex: Male

DRUGS (10)
  1. ZONISAMIDE [Concomitant]
  2. SOL-MELCORT (METHYLREDNISOLONE SODIUM SUCCINATE) [Concomitant]
  3. SOL-MELCORT (METHYLPREDNISOLONE SODIUM SUCCINATE) [Concomitant]
  4. NICARDIPINE HCL [Concomitant]
  5. CONTOMIN (CHLOPRAOMAZINE HYDROCHLORIDE) INJECTION [Suspect]
     Indication: RESTLESSNESS
     Dosage: 3 MG, UID/QD, INTRAMUSCULAR
     Route: 030
     Dates: start: 20100328, end: 20100329
  6. PROGRAF [Suspect]
     Indication: LIVER TRANSPLANT
     Dosage: ORAL
     Route: 048
     Dates: start: 20100325, end: 20100326
  7. MIDAZOLAM HCL [Concomitant]
  8. ORAP [Suspect]
     Indication: RESTLESSNESS
     Dosage: 1.5 MG /D, ORAL
     Route: 048
     Dates: start: 20100329, end: 20100406
  9. CYCLOSPORINE [Suspect]
     Indication: LIVER TRANSPLANT
     Dosage: ORAL
     Route: 048
     Dates: start: 20100326
  10. PRECEDEX [Concomitant]

REACTIONS (4)
  - RESTLESSNESS [None]
  - TOXIC ENCEPHALOPATHY [None]
  - LIVER DISORDER [None]
  - PARKINSONISM [None]
